FAERS Safety Report 7578732-6 (Version None)
Quarter: 2011Q2

REPORT INFORMATION
  Report Type: 
  Country: None (occurrence: None)
  Receive Date: 20110628
  Receipt Date: 20110613
  Transmission Date: 20111010
  Serious: Yes (Other)
  Sender: FDA-Public Use
  Company Number: US-BAYER-2011-051073

PATIENT
  Age: 71 Year
  Sex: Male
  Weight: 72.562 kg

DRUGS (3)
  1. ALEVE (CAPLET) [Suspect]
     Dosage: 1 DF, TID
     Route: 048
     Dates: start: 20110531, end: 20110603
  2. CRESTOR [Concomitant]
  3. ACETYLSALICYLIC ACID SRT [Suspect]

REACTIONS (2)
  - HAEMATOCHEZIA [None]
  - FAECES DISCOLOURED [None]
